FAERS Safety Report 5142192-5 (Version None)
Quarter: 2006Q4

REPORT INFORMATION
  Report Type: 
  Country: None (occurrence: None)
  Receive Date: 20061102
  Receipt Date: 20061023
  Transmission Date: 20070319
  Serious: Yes (Hospitalization)
  Sender: FDA-Public Use
  Company Number: HU-JNJFOC-20061004831

PATIENT
  Age: 46 Year
  Sex: Male

DRUGS (1)
  1. LEVOFLOXACIN [Suspect]
     Indication: VIRAL INFECTION
     Route: 048

REACTIONS (3)
  - PARAESTHESIA [None]
  - PERONEAL NERVE PALSY [None]
  - POLYARTERITIS NODOSA [None]
